FAERS Safety Report 13834007 (Version 1)
Quarter: 2017Q3

REPORT INFORMATION
  Report Type: Spontaneous
  Country: DE (occurrence: DE)
  Receive Date: 20170804
  Receipt Date: 20170804
  Transmission Date: 20171127
  Serious: Yes (Other)
  Sender: FDA-Public Use
  Company Number: DE-BAUSCH-BL-2017-023171

PATIENT
  Age: 54 Year
  Sex: Male
  Weight: 100 kg

DRUGS (5)
  1. RISPERDAL [Suspect]
     Active Substance: RISPERIDONE
     Indication: DRUG USE DISORDER
     Dosage: 6 TABLETS
     Route: 048
     Dates: start: 20170726
  2. DIAZEPAM. [Suspect]
     Active Substance: DIAZEPAM
     Indication: DRUG USE DISORDER
     Route: 048
     Dates: start: 20170726
  3. VOMEX [Suspect]
     Active Substance: DIMENHYDRINATE
     Indication: DRUG USE DISORDER
     Route: 048
     Dates: start: 20170726
  4. VIVINOX SLEEP STARK SCHLAFTABLETTEN [Suspect]
     Active Substance: DIPHENHYDRAMINE HYDROCHLORIDE
     Indication: DRUG USE DISORDER
     Dosage: 16 TABLETS
     Route: 048
     Dates: start: 20170726
  5. IMODIUM ACUTE 2 [Suspect]
     Active Substance: LOPERAMIDE HYDROCHLORIDE
     Indication: DRUG USE DISORDER
     Dosage: 4 TABLETS
     Route: 048
     Dates: start: 20170726

REACTIONS (5)
  - Hypertension [Unknown]
  - Tachycardia [Unknown]
  - Gait disturbance [Unknown]
  - Hypokinesia [Unknown]
  - Drug abuse [Unknown]

NARRATIVE: CASE EVENT DATE: 20170726
